FAERS Safety Report 4331109-9 (Version None)
Quarter: 2004Q1

REPORT INFORMATION
  Report Type: 
  Country: None (occurrence: None)
  Receive Date: 20040331
  Receipt Date: 20040318
  Transmission Date: 20041129
  Serious: Yes (Hospitalization, Other)
  Sender: FDA-Public Use
  Company Number: 2004018729

PATIENT
  Age: 52 Year
  Sex: Male
  Weight: 72.5755 kg

DRUGS (2)
  1. GEODON [Suspect]
     Indication: ILL-DEFINED DISORDER
     Dosage: 80 MG (DAILY),
     Dates: start: 20040101, end: 20040301
  2. PAROXETINE HCL [Concomitant]

REACTIONS (5)
  - ALCOHOL POISONING [None]
  - CHEST PAIN [None]
  - ELECTROCARDIOGRAM QT CORRECTED INTERVAL PROLONGED [None]
  - SUICIDAL IDEATION [None]
  - VENTRICULAR EXTRASYSTOLES [None]
